FAERS Safety Report 19401228 (Version 2)
Quarter: 2021Q2

REPORT INFORMATION
  Report Type: Report from Study
  Country: None (occurrence: US)
  Receive Date: 20210611
  Receipt Date: 20210617
  Transmission Date: 20210717
  Serious: Yes (Hospitalization, Other)
  Sender: FDA-Public Use
  Company Number: US-ABBVIE-21K-163-3942552-00

PATIENT
  Age: 30 Year
  Sex: Female
  Weight: 55.39 kg

DRUGS (3)
  1. MODERNA COVID?19 VACCINE [Concomitant]
     Active Substance: CX-024414
     Indication: COVID-19 IMMUNISATION
     Route: 030
     Dates: start: 20210302, end: 20210302
  2. HUMIRA [Suspect]
     Active Substance: ADALIMUMAB
     Indication: CROHN^S DISEASE
     Route: 058
     Dates: start: 2014, end: 20210422
  3. MODERNA COVID?19 VACCINE [Concomitant]
     Active Substance: CX-024414
     Route: 030
     Dates: start: 20210330, end: 20210330

REACTIONS (6)
  - Colitis [Not Recovered/Not Resolved]
  - Intestinal stenosis [Recovered/Resolved]
  - Drug level increased [Not Recovered/Not Resolved]
  - Anal fistula [Not Recovered/Not Resolved]
  - Therapeutic product effect decreased [Unknown]
  - Gastrointestinal inflammation [Not Recovered/Not Resolved]

NARRATIVE: CASE EVENT DATE: 2014
